FAERS Safety Report 19007922 (Version 3)
Quarter: 2021Q2

REPORT INFORMATION
  Report Type: Spontaneous
  Country: US (occurrence: US)
  Receive Date: 20210315
  Receipt Date: 20210405
  Transmission Date: 20210717
  Serious: Yes (Disabling, Other)
  Sender: FDA-Public Use
  Company Number: US-GILEAD-2021-0519029

PATIENT
  Age: 60 Year
  Sex: Female

DRUGS (1)
  1. EPCLUSA [Suspect]
     Active Substance: SOFOSBUVIR\VELPATASVIR
     Indication: PRODUCT USED FOR UNKNOWN INDICATION
     Dosage: UNK
     Route: 065
     Dates: start: 20210204

REACTIONS (8)
  - Fatigue [Recovering/Resolving]
  - Fall [Unknown]
  - Impaired work ability [Not Recovered/Not Resolved]
  - Feeling cold [Unknown]
  - Decreased appetite [Unknown]
  - Nausea [Unknown]
  - Neuropathy peripheral [Unknown]
  - Hypoaesthesia [Unknown]

NARRATIVE: CASE EVENT DATE: 202102
